FAERS Safety Report 9882376 (Version 1)
Quarter: 2014Q1

REPORT INFORMATION
  Report Type: Spontaneous
  Country: IR (occurrence: IR)
  Receive Date: 20140207
  Receipt Date: 20140207
  Transmission Date: 20141002
  Serious: Yes (Life-Threatening, Other)
  Sender: FDA-Public Use
  Company Number: IR-ROXANE LABORATORIES, INC.-2014-RO-00153RO

PATIENT
  Age: 27 Year
  Sex: Male

DRUGS (1)
  1. ZOLPIDEM [Suspect]
     Indication: PRODUCT USED FOR UNKNOWN INDICATION

REACTIONS (19)
  - Suicide attempt [Recovered/Resolved]
  - Suicidal ideation [Unknown]
  - Drug abuse [Unknown]
  - Hallucination, visual [Unknown]
  - Nausea [Unknown]
  - Vomiting [Unknown]
  - Insomnia [Unknown]
  - Nightmare [Unknown]
  - Dizziness [Unknown]
  - Hangover [Unknown]
  - Headache [Unknown]
  - Abdominal pain [Unknown]
  - Body temperature increased [Unknown]
  - Logorrhoea [Unknown]
  - Hair texture abnormal [Unknown]
  - Speech disorder [Unknown]
  - Dysgeusia [Unknown]
  - Skin discolouration [Unknown]
  - Skin odour abnormal [Unknown]
